FAERS Safety Report 6698596-2 (Version None)
Quarter: 2010Q2

REPORT INFORMATION
  Report Type: 
  Country: None (occurrence: None)
  Receive Date: 20100427
  Receipt Date: 20100415
  Transmission Date: 20101027
  Serious: Yes (Hospitalization)
  Sender: FDA-Public Use
  Company Number: IT-PFIZER INC-2010048052

PATIENT
  Sex: Male

DRUGS (2)
  1. VINCRISTINE SULFATE [Suspect]
  2. DOXORUBICIN HCL [Suspect]

REACTIONS (3)
  - COUGH [None]
  - FEBRILE NEUTROPENIA [None]
  - PYREXIA [None]
